FAERS Safety Report 14678963 (Version 19)
Quarter: 2021Q1

REPORT INFORMATION
  Report Type: Spontaneous
  Country: DE (occurrence: DE)
  Receive Date: 20180326
  Receipt Date: 20210101
  Transmission Date: 20210419
  Serious: Yes (Hospitalization, Other)
  Sender: FDA-Public Use
  Company Number: PHHY2015DE177645

PATIENT
  Age: 75 Year
  Sex: Male
  Weight: 81 kg

DRUGS (31)
  1. ROACTEMRA [Suspect]
     Active Substance: TOCILIZUMAB
     Indication: GIANT CELL ARTERITIS
     Dosage: 162 MG,  14 DAY
     Route: 058
  2. ROACTEMRA [Suspect]
     Active Substance: TOCILIZUMAB
     Dosage: 324 ONCE A DAY
     Route: 058
     Dates: end: 201506
  3. NADROPARIN CALCIUM [Suspect]
     Active Substance: NADROPARIN CALCIUM
     Indication: VENOUS THROMBOSIS LIMB
     Dosage: UNK
     Route: 065
  4. ROACTEMRA [Suspect]
     Active Substance: TOCILIZUMAB
     Indication: RHEUMATOID ARTHRITIS
     Dosage: 324 MG, QD
     Route: 058
     Dates: end: 201506
  5. ROACTEMRA [Suspect]
     Active Substance: TOCILIZUMAB
     Dosage: 324 MG, UNK
     Route: 058
     Dates: start: 20150706, end: 20171025
  6. ROACTEMRA [Suspect]
     Active Substance: TOCILIZUMAB
     Dosage: 162 MG, Z (EVERY 9 DAYS)
     Route: 058
     Dates: start: 20190328, end: 20190404
  7. CLEXANE [Suspect]
     Active Substance: ENOXAPARIN SODIUM
     Indication: VENOUS THROMBOSIS LIMB
     Dosage: UNK
     Route: 065
     Dates: start: 201507
  8. ROACTEMRA [Suspect]
     Active Substance: TOCILIZUMAB
     Dosage: 162 MG, BID
     Route: 058
     Dates: start: 20180131
  9. ROACTEMRA [Suspect]
     Active Substance: TOCILIZUMAB
     Dosage: 162 MG
     Route: 058
     Dates: start: 20150607
  10. QUETIAPINE. [Suspect]
     Active Substance: QUETIAPINE
     Indication: PRODUCT USED FOR UNKNOWN INDICATION
     Dosage: 25 MG, QD
     Route: 065
  11. ROACTEMRA [Suspect]
     Active Substance: TOCILIZUMAB
     Dosage: 162 MG, Q2W
     Route: 058
     Dates: start: 201704, end: 20171025
  12. ROACTEMRA [Suspect]
     Active Substance: TOCILIZUMAB
     Dosage: 324 MG, QD
     Route: 058
     Dates: start: 20140601, end: 201506
  13. ROACTEMRA [Suspect]
     Active Substance: TOCILIZUMAB
     Dosage: 162 MG, QW, WE
     Route: 058
     Dates: start: 20190227, end: 20190327
  14. ROACTEMRA [Suspect]
     Active Substance: TOCILIZUMAB
     Dosage: 162 MG, QW
     Route: 058
     Dates: start: 202005
  15. PROLIA [Suspect]
     Active Substance: DENOSUMAB
     Indication: OSTEOPOROSIS
     Dosage: 60 MG EVERY 6 MONTHS
     Route: 058
     Dates: start: 201405
  16. LISIHEXAL [Concomitant]
     Active Substance: LISINOPRIL
     Indication: PRODUCT USED FOR UNKNOWN INDICATION
     Dosage: 20 MG, QD
     Route: 065
  17. ROACTEMRA [Suspect]
     Active Substance: TOCILIZUMAB
     Indication: MYALGIA
     Dosage: 162 MG, QW
     Route: 058
     Dates: start: 20140601, end: 201506
  18. ROACTEMRA [Suspect]
     Active Substance: TOCILIZUMAB
     Indication: VASCULITIS
     Dosage: 162 MG, UNK (162 MG, 14 DAY)
     Route: 058
     Dates: start: 20170414, end: 20171025
  19. ROACTEMRA [Suspect]
     Active Substance: TOCILIZUMAB
     Dosage: 162 MG, Z (1 DOSE 3 WEEKS)
     Route: 058
     Dates: start: 201811
  20. COLECALCIFEROL [Suspect]
     Active Substance: CHOLECALCIFEROL
     Indication: OSTEOPOROSIS
     Dosage: 1000 IU
     Route: 048
     Dates: start: 201204
  21. CORTISON ACETATE [Concomitant]
     Active Substance: CORTISONE ACETATE
     Indication: PRODUCT USED FOR UNKNOWN INDICATION
     Dosage: 10 MG, UNK
     Route: 065
  22. AMLODIPIN [Concomitant]
     Active Substance: AMLODIPINE BESYLATE
     Dosage: 5 MG, QD
     Route: 065
  23. ROACTEMRA [Suspect]
     Active Substance: TOCILIZUMAB
     Dosage: 162 MG, 12 DAY
     Route: 058
     Dates: start: 20170706, end: 20171025
  24. ESCITALOPRAM [Concomitant]
     Active Substance: ESCITALOPRAM OXALATE
     Indication: PRODUCT USED FOR UNKNOWN INDICATION
     Dosage: 8 GTT (DROP)
     Route: 048
  25. FRAXIPARIN [Suspect]
     Active Substance: NADROPARIN CALCIUM
     Indication: VENOUS THROMBOSIS LIMB
     Dosage: UNK
     Route: 065
     Dates: start: 201507
  26. ROACTEMRA [Suspect]
     Active Substance: TOCILIZUMAB
     Dosage: 162 MG EVERY 10 DAYS
     Route: 058
     Dates: start: 20180414
  27. ROACTEMRA [Suspect]
     Active Substance: TOCILIZUMAB
     Dosage: 324 MG, BID
     Route: 058
     Dates: start: 20150706, end: 20171025
  28. PANTOPRAZOLE [Concomitant]
     Active Substance: PANTOPRAZOLE
     Indication: PRODUCT USED FOR UNKNOWN INDICATION
     Dosage: UNK
     Route: 065
  29. ESCITALOPRAM [Concomitant]
     Active Substance: ESCITALOPRAM OXALATE
     Dosage: 5 GTT, UNK
     Route: 048
  30. ESCITALOPRAM [Concomitant]
     Active Substance: ESCITALOPRAM OXALATE
     Dosage: 10 GTT, QD
     Route: 048
  31. AMLODIPIN [Concomitant]
     Active Substance: AMLODIPINE BESYLATE
     Indication: PRODUCT USED FOR UNKNOWN INDICATION
     Dosage: 2.5 MG, QD
     Route: 065

REACTIONS (27)
  - Impaired healing [Recovered/Resolved]
  - C-reactive protein increased [Recovered/Resolved]
  - Sleep disorder [Unknown]
  - Off label use [Unknown]
  - Rash erythematous [Unknown]
  - Inappropriate schedule of product administration [Unknown]
  - Product use in unapproved indication [Unknown]
  - Depression [Not Recovered/Not Resolved]
  - Prostate cancer [Recovered/Resolved]
  - Fall [Unknown]
  - Dysuria [Unknown]
  - Acetabulum fracture [Recovering/Resolving]
  - Wound dehiscence [Recovered/Resolved]
  - Bronchitis [Recovered/Resolved]
  - Lymphoedema [Recovered/Resolved]
  - Angioedema [Recovered/Resolved]
  - Autoimmune disorder [Unknown]
  - Soft tissue disorder [Recovered/Resolved]
  - Lymphocele [Recovered/Resolved]
  - Erysipelas [Recovering/Resolving]
  - Sepsis [Recovering/Resolving]
  - Leukopenia [Recovered/Resolved]
  - Hyperaesthesia [Unknown]
  - Venous thrombosis limb [Not Recovered/Not Resolved]
  - Suture rupture [Recovered/Resolved]
  - Eye inflammation [Recovering/Resolving]
  - Platelet count decreased [Unknown]

NARRATIVE: CASE EVENT DATE: 201407
